FAERS Safety Report 7571170-1 (Version None)
Quarter: 2011Q2

REPORT INFORMATION
  Report Type: 
  Country: None (occurrence: None)
  Receive Date: 20110624
  Receipt Date: 20110620
  Transmission Date: 20111010
  Serious: Yes (Other)
  Sender: FDA-Public Use
  Company Number: FR-PFIZER INC-2011063876

PATIENT
  Age: 50 Year
  Sex: Male

DRUGS (3)
  1. VFEND [Suspect]
     Indication: BRONCHOPULMONARY ASPERGILLOSIS
     Dosage: UNK
     Route: 048
     Dates: start: 20040301, end: 20040901
  2. BACTRIM [Concomitant]
     Dosage: UNK
     Dates: start: 20040301
  3. VFEND [Suspect]
     Dosage: UNK
     Route: 048
     Dates: start: 20070501, end: 20071101

REACTIONS (3)
  - BOWEN'S DISEASE [None]
  - SQUAMOUS CELL CARCINOMA [None]
  - PHOTOSENSITIVITY REACTION [None]
